FAERS Safety Report 10644922 (Version 12)
Quarter: 2015Q3

REPORT INFORMATION
  Report Type: Spontaneous
  Country: CA (occurrence: CA)
  Receive Date: 20141211
  Receipt Date: 20150806
  Transmission Date: 20151125
  Serious: Yes (Hospitalization, Other)
  Sender: FDA-Public Use
  Company Number: CA-ROCHE-1262889

PATIENT
  Age: 63 Year
  Sex: Male

DRUGS (5)
  1. SPIRIVA [Concomitant]
     Active Substance: TIOTROPIUM BROMIDE MONOHYDRATE
  2. XOLAIR [Suspect]
     Active Substance: OMALIZUMAB
     Route: 058
     Dates: start: 20150324
  3. VENTOLIN [Concomitant]
     Active Substance: ALBUTEROL SULFATE
  4. XOLAIR [Suspect]
     Active Substance: OMALIZUMAB
     Indication: ASTHMA
     Route: 058
     Dates: start: 20101129
  5. XOLAIR [Suspect]
     Active Substance: OMALIZUMAB
     Route: 058
     Dates: start: 20150210

REACTIONS (24)
  - Diverticulitis [Recovered/Resolved]
  - Weight decreased [Unknown]
  - Pneumothorax [Unknown]
  - Influenza [Unknown]
  - Limb crushing injury [Unknown]
  - Pulmonary oedema [Recovered/Resolved]
  - Respiratory tract congestion [Unknown]
  - Postoperative wound infection [Unknown]
  - Fatigue [Unknown]
  - Back pain [Recovered/Resolved]
  - Cardiac discomfort [Unknown]
  - Accident [Unknown]
  - Blood pressure systolic increased [Unknown]
  - Nasopharyngitis [Recovering/Resolving]
  - Hypoaesthesia [Unknown]
  - Wound [Recovering/Resolving]
  - Angina pectoris [Unknown]
  - Sleep disorder [Unknown]
  - Dyspnoea [Unknown]
  - Malignant melanoma [Unknown]
  - Headache [Unknown]
  - Cerebrovascular accident [Unknown]
  - Pneumonia [Unknown]
  - Bronchitis [Unknown]

NARRATIVE: CASE EVENT DATE: 201208
